FAERS Safety Report 14347295 (Version 2)
Quarter: 2019Q1

REPORT INFORMATION
  Report Type: Spontaneous
  Country: US (occurrence: US)
  Receive Date: 20180103
  Receipt Date: 20190327
  Transmission Date: 20190417
  Serious: Yes (Hospitalization, Disabling)
  Sender: FDA-Public Use
  Company Number: US-JNJFOC-20171234490

PATIENT
  Age: 40 Year
  Sex: Male

DRUGS (1)
  1. INVOKANA [Suspect]
     Active Substance: CANAGLIFLOZIN
     Indication: PRODUCT USED FOR UNKNOWN INDICATION
     Route: 048
     Dates: start: 20140717

REACTIONS (4)
  - Leg amputation [Recovering/Resolving]
  - Neuropathic arthropathy [Not Recovered/Not Resolved]
  - Osteomyelitis acute [Unknown]
  - Wound [Recovering/Resolving]

NARRATIVE: CASE EVENT DATE: 201704
